FAERS Safety Report 17938647 (Version 1)
Quarter: 2020Q2

REPORT INFORMATION
  Report Type: Spontaneous
  Country: CN (occurrence: CN)
  Receive Date: 20200624
  Receipt Date: 20200624
  Transmission Date: 20200714
  Serious: Yes (Hospitalization)
  Sender: FDA-Public Use
  Company Number: CN-BAUSCH-BL-2020-017545

PATIENT
  Age: 6 Year
  Sex: Female

DRUGS (37)
  1. DEXAMETHASONE. [Suspect]
     Active Substance: DEXAMETHASONE
     Dosage: RBB REGIMEN
     Route: 065
     Dates: start: 2019, end: 2019
  2. CYCLOPHOSPHAMIDE. [Suspect]
     Active Substance: CYCLOPHOSPHAMIDE
     Dosage: RBB REGIMEN
     Route: 065
     Dates: start: 2019, end: 2019
  3. VINCRISTINE [Suspect]
     Active Substance: VINCRISTINE
     Indication: DIFFUSE LARGE B-CELL LYMPHOMA STAGE III
     Dosage: AA REGIMEN
     Route: 065
     Dates: start: 2019, end: 2019
  4. VINCRISTINE [Suspect]
     Active Substance: VINCRISTINE
     Dosage: RBB REGIMEN
     Route: 065
     Dates: start: 2019, end: 2019
  5. VINCRISTINE [Suspect]
     Active Substance: VINCRISTINE
     Dosage: RCC REGIMEN
     Route: 065
     Dates: start: 201908
  6. METHOTREXATE. [Suspect]
     Active Substance: METHOTREXATE
     Dosage: RAA REGIMEN
     Route: 065
     Dates: start: 201908, end: 2019
  7. ADRIAMYCIN [Suspect]
     Active Substance: DOXORUBICIN HYDROCHLORIDE
     Indication: DIFFUSE LARGE B-CELL LYMPHOMA STAGE III
     Dosage: RBB REGIMEN
     Route: 065
     Dates: start: 2019, end: 2019
  8. IMIPENEM [Suspect]
     Active Substance: IMIPENEM
     Indication: DIARRHOEA
  9. CYTARABINE. [Suspect]
     Active Substance: CYTARABINE
     Dosage: RAA REGIMENS
     Route: 065
     Dates: start: 201907, end: 201907
  10. RITUXIMAB. [Suspect]
     Active Substance: RITUXIMAB
     Dosage: RCC REGIMEN
     Route: 065
     Dates: start: 2019, end: 2019
  11. VINDESINE [Suspect]
     Active Substance: VINDESINE
     Indication: DIFFUSE LARGE B-CELL LYMPHOMA STAGE III
     Dosage: RCC REGIMEN
     Route: 065
     Dates: start: 2019, end: 2019
  12. IFOSFAMIDE. [Suspect]
     Active Substance: IFOSFAMIDE
     Indication: DIFFUSE LARGE B-CELL LYMPHOMA STAGE III
     Dosage: AA REGIMEN
     Route: 065
     Dates: start: 2019, end: 2019
  13. ADRIAMYCIN [Suspect]
     Active Substance: DOXORUBICIN HYDROCHLORIDE
     Dosage: CONTINUED RBB REGIMEN
     Route: 065
     Dates: start: 20190820
  14. DEXAMETHASONE. [Suspect]
     Active Substance: DEXAMETHASONE
     Dosage: RCC REGIMENS
     Route: 065
     Dates: start: 2019, end: 20190607
  15. CYCLOPHOSPHAMIDE. [Suspect]
     Active Substance: CYCLOPHOSPHAMIDE
     Dosage: RBB REGIMEN
     Route: 065
     Dates: start: 201908
  16. CYTARABINE. [Suspect]
     Active Substance: CYTARABINE
     Indication: DIFFUSE LARGE B-CELL LYMPHOMA STAGE III
     Dosage: AA REGIMEN
     Route: 065
     Dates: start: 2019, end: 2019
  17. ETOPOSIDE. [Suspect]
     Active Substance: ETOPOSIDE
     Dosage: RCC REGIMEN
     Route: 065
     Dates: start: 2019, end: 2019
  18. IFOSFAMIDE. [Suspect]
     Active Substance: IFOSFAMIDE
     Dosage: RAA REGIMEN
     Route: 065
     Dates: start: 201907, end: 201907
  19. VANCOMYCIN [Suspect]
     Active Substance: VANCOMYCIN
     Indication: DIARRHOEA
  20. CYCLOPHOSPHAMIDE. [Suspect]
     Active Substance: CYCLOPHOSPHAMIDE
     Indication: DIFFUSE LARGE B-CELL LYMPHOMA STAGE III
     Dosage: V REGIMEN
     Route: 065
     Dates: start: 20190503, end: 2019
  21. METHOTREXATE. [Suspect]
     Active Substance: METHOTREXATE
     Dosage: RBB REGIMEN
     Route: 065
     Dates: start: 2019, end: 2019
  22. DEXAMETHASONE. [Suspect]
     Active Substance: DEXAMETHASONE
     Dosage: CONTINUED WITH RBB REGIMENS
     Route: 065
     Dates: start: 201908
  23. RITUXIMAB. [Suspect]
     Active Substance: RITUXIMAB
     Dosage: RAA REGIMENS
     Route: 065
     Dates: start: 201907, end: 201907
  24. METHOTREXATE. [Suspect]
     Active Substance: METHOTREXATE
     Indication: DIFFUSE LARGE B-CELL LYMPHOMA STAGE III
     Dosage: AA REGIMEN
     Route: 065
     Dates: start: 2019, end: 2019
  25. RITUXIMAB. [Suspect]
     Active Substance: RITUXIMAB
     Indication: DIFFUSE LARGE B-CELL LYMPHOMA STAGE III
     Dosage: RBB REGIMEN
     Route: 065
     Dates: start: 2019, end: 2019
  26. DEXAMETHASONE. [Suspect]
     Active Substance: DEXAMETHASONE
     Dosage: RAA REGIMENS
     Route: 065
     Dates: start: 20190713, end: 20190717
  27. VINCRISTINE [Suspect]
     Active Substance: VINCRISTINE
     Dosage: RCC REGIMEN
     Route: 065
     Dates: start: 2019, end: 2019
  28. CYTARABINE. [Suspect]
     Active Substance: CYTARABINE
     Dosage: RCC REGIMEN
     Route: 065
     Dates: start: 2019, end: 2019
  29. ETOPOSIDE. [Suspect]
     Active Substance: ETOPOSIDE
     Dosage: RAA REGIMENS
     Route: 065
     Dates: start: 201907, end: 201907
  30. RITUXIMAB. [Suspect]
     Active Substance: RITUXIMAB
     Dosage: RAA REGIMENS
     Route: 065
     Dates: start: 201908
  31. CARPROFEN [Suspect]
     Active Substance: CARPROFEN
     Indication: DIARRHOEA
  32. DEXAMETHASONE. [Suspect]
     Active Substance: DEXAMETHASONE
     Indication: DIFFUSE LARGE B-CELL LYMPHOMA STAGE III
     Dosage: AA REGIMEN
     Route: 065
     Dates: start: 2019, end: 2019
  33. METHOTREXATE. [Suspect]
     Active Substance: METHOTREXATE
     Dosage: RAA REGIMEN
     Route: 065
     Dates: start: 201907, end: 201907
  34. ETOPOSIDE. [Suspect]
     Active Substance: ETOPOSIDE
     Indication: DIFFUSE LARGE B-CELL LYMPHOMA STAGE III
     Dosage: AA REGIMEN
     Route: 065
     Dates: start: 2019, end: 2019
  35. VANCOMYCIN [Suspect]
     Active Substance: VANCOMYCIN
     Indication: PNEUMONIA
     Route: 042
  36. IMIPENEM [Suspect]
     Active Substance: IMIPENEM
     Indication: PNEUMONIA
     Route: 042
  37. CARPROFEN [Suspect]
     Active Substance: CARPROFEN
     Indication: PNEUMONIA
     Route: 042

REACTIONS (1)
  - Clostridium difficile infection [Recovered/Resolved]

NARRATIVE: CASE EVENT DATE: 2019
